FAERS Safety Report 16169594 (Version 1)
Quarter: 2019Q2

REPORT INFORMATION
  Report Type: Spontaneous
  Country: US (occurrence: US)
  Receive Date: 20190407
  Receipt Date: 20190407
  Transmission Date: 20190711
  Serious: Yes (Other)
  Sender: FDA-Public Use
  Company Number: None

PATIENT
  Age: 78 Year
  Sex: Male
  Weight: 90 kg

DRUGS (1)
  1. VALSARTAN 160MG TAB, DAILY [Suspect]
     Active Substance: VALSARTAN
     Indication: HYPERTENSION
     Dosage: ?          QUANTITY:160 TABLET(S);?
     Route: 048
     Dates: start: 20180815, end: 20190401

REACTIONS (3)
  - Pruritus [None]
  - Rash [None]
  - Drug hypersensitivity [None]

NARRATIVE: CASE EVENT DATE: 20181001
